FAERS Safety Report 6302165-3 (Version None)
Quarter: 2009Q3

REPORT INFORMATION
  Report Type: 
  Country: None (occurrence: None)
  Receive Date: 20090807
  Receipt Date: 20090723
  Transmission Date: 20100115
  Serious: Yes (Hospitalization)
  Sender: FDA-Public Use
  Company Number: CN-GENENTECH-260940

PATIENT
  Sex: Male
  Weight: 73 kg

DRUGS (5)
  1. BEVACIZUMAB [Suspect]
     Indication: COLORECTAL CANCER METASTATIC
     Dosage: 365 MG, 2/WEEK
     Route: 042
     Dates: start: 20080415
  2. FLUOROURACIL [Suspect]
     Indication: COLORECTAL CANCER METASTATIC
     Dosage: 890 MG, 1/WEEK
     Route: 042
     Dates: start: 20080415
  3. FLUOROURACIL [Suspect]
     Dosage: 676 MG, 1/WEEK
  4. IRINOTECAN HCL [Suspect]
     Indication: COLORECTAL CANCER METASTATIC
     Dosage: 220 MG, 1/WEEK
     Route: 042
     Dates: start: 20080415
  5. IRINOTECAN HCL [Suspect]
     Dosage: 169 MG, 1/WEEK

REACTIONS (1)
  - BONE MARROW FAILURE [None]
